FAERS Safety Report 5725140-6 (Version None)
Quarter: 2008Q2

REPORT INFORMATION
  Report Type: 
  Country: None (occurrence: None)
  Receive Date: 20080501
  Receipt Date: 20080407
  Transmission Date: 20081010
  Serious: Yes (Other)
  Sender: FDA-Public Use
  Company Number: US-MERCK-0804USA04768

PATIENT
  Sex: Female

DRUGS (10)
  1. VYTORIN [Suspect]
     Route: 048
     Dates: end: 20080128
  2. OMEPRAZOLE [Concomitant]
     Route: 048
  3. DIOVAN [Concomitant]
     Route: 048
  4. PLAVIX [Concomitant]
     Route: 048
  5. METOPROLOL [Concomitant]
     Route: 048
  6. NABUMETONE [Concomitant]
     Route: 048
  7. LEVOXYL [Concomitant]
     Route: 048
  8. METHOTREXATE [Concomitant]
     Route: 048
  9. POTASSIUM CHLORIDE [Concomitant]
     Route: 048
  10. AMLODIPINE BESYLATE [Concomitant]
     Route: 048

REACTIONS (1)
  - MYOCARDIAL INFARCTION [None]
